FAERS Safety Report 19037470 (Version 1)
Quarter: 2021Q1

REPORT INFORMATION
  Report Type: Report from Study
  Country: US (occurrence: US)
  Receive Date: 20210322
  Receipt Date: 20210322
  Transmission Date: 20210420
  Serious: Yes (Hospitalization)
  Sender: FDA-Public Use
  Company Number: US-ROCHE-2788703

PATIENT
  Age: 64 Year
  Sex: Male
  Weight: 100.4 kg

DRUGS (3)
  1. RECOMBINANT HUMAN INTERLEUKIN?7 [Suspect]
     Active Substance: INTERLEUKIN-7 HUMAN RECOMBINANT
     Indication: TRANSITIONAL CELL CARCINOMA
     Route: 065
     Dates: start: 20200723
  2. ATEZOLIZUMAB. [Suspect]
     Active Substance: ATEZOLIZUMAB
     Indication: TRANSITIONAL CELL CARCINOMA
     Dosage: LAST DOSE ADMINISTERED ON 30/JUL/2020.
     Route: 041
  3. RECOMBINANT HUMAN INTERLEUKIN?7 [Suspect]
     Active Substance: INTERLEUKIN-7 HUMAN RECOMBINANT
     Dosage: LAST DOSE ADMINISTERED ON 13/AUG/2020.
     Route: 065
     Dates: start: 20200730

REACTIONS (2)
  - Blood creatinine increased [Not Recovered/Not Resolved]
  - Hypercalcaemia [Not Recovered/Not Resolved]

NARRATIVE: CASE EVENT DATE: 20200820
